FAERS Safety Report 8342511-2 (Version None)
Quarter: 2012Q2

REPORT INFORMATION
  Report Type: 
  Country: None (occurrence: None)
  Receive Date: 20120508
  Receipt Date: 20120427
  Transmission Date: 20120825
  Serious: No
  Sender: FDA-Public Use
  Company Number: US-BIOGENIDEC-2012BI015011

PATIENT
  Age: 64 Year
  Sex: Female

DRUGS (2)
  1. TYSABRI [Suspect]
     Indication: MULTIPLE SCLEROSIS
     Route: 042
     Dates: start: 20110121
  2. AVONEX [Concomitant]
     Indication: MULTIPLE SCLEROSIS
     Route: 030
     Dates: start: 19991210

REACTIONS (6)
  - NECK PAIN [None]
  - PAIN IN EXTREMITY [None]
  - STRESS [None]
  - MYALGIA [None]
  - ANTICOAGULATION DRUG LEVEL BELOW THERAPEUTIC [None]
  - BACK PAIN [None]
